FAERS Safety Report 12228478 (Version 1)
Quarter: 2016Q2

REPORT INFORMATION
  Report Type: Spontaneous
  Country: US (occurrence: US)
  Receive Date: 20160401
  Receipt Date: 20160401
  Transmission Date: 20160815
  Serious: No
  Sender: FDA-Public Use
  Company Number: US-PFIZER INC-2016184579

PATIENT
  Age: 43 Year
  Sex: Female
  Weight: 50.8 kg

DRUGS (1)
  1. BICILLIN L-A [Suspect]
     Active Substance: PENICILLIN G BENZATHINE
     Indication: LYME DISEASE
     Dosage: 1.2MILLION UNITS/2MLS INJECTION, TWICE A WEEK INTRAMUSCULARLY
     Route: 030
     Dates: start: 2016

REACTIONS (3)
  - Pain [Recovered/Resolved]
  - Product use issue [Not Recovered/Not Resolved]
  - Wrong technique in product usage process [Recovered/Resolved]

NARRATIVE: CASE EVENT DATE: 2016
